FAERS Safety Report 17904930 (Version 5)
Quarter: 2020Q4

REPORT INFORMATION
  Report Type: Report from Study
  Country: US (occurrence: US)
  Receive Date: 20200616
  Receipt Date: 20201013
  Transmission Date: 20210113
  Serious: Yes (Other)
  Sender: FDA-Public Use
  Company Number: NVSC2020US167915

PATIENT
  Sex: Female

DRUGS (1)
  1. PIQRAY [Suspect]
     Active Substance: ALPELISIB
     Indication: PRODUCT USED FOR UNKNOWN INDICATION
     Dosage: UNK
     Route: 048

REACTIONS (13)
  - Nausea [Unknown]
  - Taste disorder [Unknown]
  - Decreased appetite [Unknown]
  - Diarrhoea [Unknown]
  - Type 2 diabetes mellitus [Unknown]
  - Scab [Unknown]
  - Oedema [Unknown]
  - Haemorrhage urinary tract [Unknown]
  - Weight decreased [Unknown]
  - Alopecia [Unknown]
  - Blood glucose increased [Unknown]
  - Rash [Unknown]
  - Insomnia [Unknown]
